FAERS Safety Report 6636944-X (Version None)
Quarter: 2010Q1

REPORT INFORMATION
  Report Type: 
  Country: None (occurrence: None)
  Receive Date: 20100316
  Receipt Date: 20100301
  Transmission Date: 20100710
  Serious: Yes (Other)
  Sender: FDA-Public Use
  Company Number: AT-BRACCO-000063

PATIENT
  Age: 28 Year
  Sex: Male
  Weight: 92 kg

DRUGS (1)
  1. MULTIHANCE [Suspect]
     Indication: DIAGNOSTIC PROCEDURE

REACTIONS (4)
  - CHILLS [None]
  - DISORIENTATION [None]
  - RESPIRATORY RATE INCREASED [None]
  - VOMITING [None]
